FAERS Safety Report 4687216-4 (Version None)
Quarter: 2005Q2

REPORT INFORMATION
  Report Type: 
  Country: None (occurrence: None)
  Receive Date: 20050610
  Receipt Date: 20050606
  Transmission Date: 20051028
  Serious: Yes (Other)
  Sender: FDA-Public Use
  Company Number: PHBS2005JP08016

PATIENT
  Age: 69 Year
  Sex: Female

DRUGS (5)
  1. EBRANTIL [Concomitant]
     Dosage: 15 MG, UNK
  2. BASEN [Concomitant]
  3. MAGNESIUM OXIDE [Concomitant]
     Indication: DEPRESSION
  4. TOLEDOMIN [Concomitant]
     Indication: DEPRESSION
  5. FASTIC [Suspect]
     Dosage: 270 MG, UNK
     Route: 048
     Dates: start: 20050520

REACTIONS (1)
  - CARDIAC FAILURE [None]
